FAERS Safety Report 4906627-2 (Version None)
Quarter: 2006Q1

REPORT INFORMATION
  Report Type: 
  Country: None (occurrence: None)
  Receive Date: 20060209
  Receipt Date: 20060202
  Transmission Date: 20060701
  Serious: Yes (Hospitalization)
  Sender: FDA-Public Use
  Company Number: CH-GLAXOSMITHKLINE-B0409046A

PATIENT
  Age: 53 Year
  Sex: Female

DRUGS (8)
  1. DEROXAT [Suspect]
     Indication: DRUG USE FOR UNKNOWN INDICATION
     Dosage: 20MG SEE DOSAGE TEXT
     Route: 048
     Dates: end: 20060113
  2. METHADONE HCL [Suspect]
     Indication: MENTAL DISORDER
     Dosage: 75MG TWICE PER DAY
     Route: 048
     Dates: end: 20060113
  3. KALETRA [Suspect]
     Indication: DRUG USE FOR UNKNOWN INDICATION
     Dosage: 400MG TWICE PER DAY
     Route: 048
     Dates: start: 20010101, end: 20060104
  4. RITALIN [Suspect]
     Indication: DRUG USE FOR UNKNOWN INDICATION
     Dosage: 20MG TWICE PER DAY
     Route: 048
     Dates: end: 20060113
  5. VIDEX [Concomitant]
     Indication: DRUG USE FOR UNKNOWN INDICATION
     Dosage: 250MG PER DAY
     Route: 048
     Dates: end: 20060104
  6. TENOFOVIR [Concomitant]
     Indication: DRUG USE FOR UNKNOWN INDICATION
     Dosage: 245MG PER DAY
     Route: 048
     Dates: end: 20060104
  7. FOSAMPRENAVIR [Concomitant]
     Indication: DRUG USE FOR UNKNOWN INDICATION
     Dosage: 700MG TWICE PER DAY
     Route: 048
     Dates: end: 20060104
  8. MORPHINE [Concomitant]
     Indication: DRUG USE FOR UNKNOWN INDICATION
     Route: 065

REACTIONS (7)
  - DIZZINESS [None]
  - DRUG INTERACTION [None]
  - DYSPNOEA [None]
  - ELECTROCARDIOGRAM QT PROLONGED [None]
  - HYPERLACTACIDAEMIA [None]
  - PALPITATIONS [None]
  - TORSADE DE POINTES [None]
